FAERS Safety Report 8284769-4 (Version None)
Quarter: 2012Q2

REPORT INFORMATION
  Report Type: 
  Country: None (occurrence: None)
  Receive Date: 20120413
  Receipt Date: 20110711
  Transmission Date: 20120825
  Serious: No
  Sender: FDA-Public Use
  Company Number: US-ASTRAZENECA-2011SE41539

PATIENT
  Age: 52 Year
  Sex: Female

DRUGS (4)
  1. VITAMIN D [Concomitant]
  2. CALCIUM CARBONATE [Concomitant]
  3. NEXIUM [Suspect]
     Dosage: ONCE A DAY
     Route: 048
     Dates: start: 20070101
  4. NEXIUM [Suspect]
     Dosage: TWICE A DAY
     Route: 048
     Dates: start: 20100101

REACTIONS (1)
  - OSTEOPOROSIS [None]
